FAERS Safety Report 17719746 (Version 1)
Quarter: 2020Q2

REPORT INFORMATION
  Report Type: Spontaneous
  Country: US (occurrence: US)
  Receive Date: 20200428
  Receipt Date: 20200428
  Transmission Date: 20200714
  Serious: No
  Sender: FDA-Public Use
  Company Number: US-ARBOR PHARMACEUTICALS, LLC-US-2019ARB001068

PATIENT
  Age: 1 Day
  Sex: Female

DRUGS (1)
  1. E.E.S. [Suspect]
     Active Substance: ERYTHROMYCIN ETHYLSUCCINATE
     Indication: ARRHYTHMIA
     Dosage: UNK
     Dates: start: 20180620

REACTIONS (1)
  - Product use in unapproved indication [Unknown]

NARRATIVE: CASE EVENT DATE: 20180620
